FAERS Safety Report 14544018 (Version 2)
Quarter: 2018Q2

REPORT INFORMATION
  Report Type: Spontaneous
  Country: GB (occurrence: GB)
  Receive Date: 20180216
  Receipt Date: 20180522
  Transmission Date: 20180711
  Serious: Yes (Death, Hospitalization, Other)
  Sender: FDA-Public Use
  Company Number: GB-PFIZER INC-2018064740

PATIENT
  Age: 79 Year
  Sex: Male
  Weight: 73 kg

DRUGS (9)
  1. CITALOPRAM [Concomitant]
     Active Substance: CITALOPRAM HYDROBROMIDE
  2. OMEPRAZOLE. [Concomitant]
     Active Substance: OMEPRAZOLE
  3. ORAMORPH [Concomitant]
     Active Substance: MORPHINE SULFATE
  4. PREGABALIN. [Concomitant]
     Active Substance: PREGABALIN
  5. BICALUTAMIDE. [Concomitant]
     Active Substance: BICALUTAMIDE
  6. PEPPERMINT OIL [Concomitant]
     Active Substance: PEPPERMINT OIL
  7. LAXIDO [Concomitant]
     Active Substance: POLYETHYLENE GLYCOL 3350\POTASSIUM CHLORIDE\SODIUM BICARBONATE\SODIUM CHLORIDE
  8. ZOLEDRONIC ACID [Suspect]
     Active Substance: ZOLEDRONIC ACID
     Indication: OSTEOPOROSIS
     Dosage: 5 MG, UNK
     Route: 042
     Dates: start: 201612, end: 20180118
  9. ADCAL D3 [Concomitant]
     Active Substance: CALCIUM CARBONATE\CHOLECALCIFEROL

REACTIONS (4)
  - Dyspnoea [Not Recovered/Not Resolved]
  - Cardiac arrest [Fatal]
  - Ventricular fibrillation [Not Recovered/Not Resolved]
  - Circulatory collapse [Not Recovered/Not Resolved]

NARRATIVE: CASE EVENT DATE: 20180120
